FAERS Safety Report 5670837-X (Version None)
Quarter: 2008Q1

REPORT INFORMATION
  Report Type: 
  Country: None (occurrence: None)
  Receive Date: 20080318
  Receipt Date: 20080311
  Transmission Date: 20080703
  Serious: Yes (Other)
  Sender: FDA-Public Use
  Company Number: NZ-AVENTIS-200721386GDDC

PATIENT
  Age: 66 Year
  Sex: Female

DRUGS (3)
  1. ARAVA [Suspect]
     Indication: RHEUMATOID ARTHRITIS
     Route: 048
     Dates: start: 20051031
  2. METHOTREXATE [Concomitant]
     Dosage: DOSE: UNK
     Dates: start: 20020301, end: 20030601
  3. METHOTREXATE [Concomitant]
     Dosage: DOSE: UNK
     Dates: start: 20050401, end: 20070301

REACTIONS (2)
  - MALIGNANT MELANOMA [None]
  - METASTASES TO LYMPH NODES [None]
